FAERS Safety Report 6970288-1 (Version None)
Quarter: 2010Q3

REPORT INFORMATION
  Report Type: 
  Country: None (occurrence: None)
  Receive Date: 20100908
  Receipt Date: 20100903
  Transmission Date: 20110219
  Serious: Yes (Other)
  Sender: FDA-Public Use
  Company Number: US-B.I. PHARMACEUTICALS,INC./RIDGEFIELD-2010-BP-10059BP

PATIENT
  Sex: Female

DRUGS (5)
  1. SPIRIVA [Suspect]
     Dosage: 18 MCG
     Route: 055
     Dates: end: 20080101
  2. SPIRIVA [Suspect]
     Dosage: 18 MCG
     Route: 055
     Dates: start: 20100902
  3. LISINOPRIL [Concomitant]
     Indication: HYPERTENSION
  4. HYDROXYCHLOROQUINE [Concomitant]
     Indication: CUTANEOUS LUPUS ERYTHEMATOSUS
  5. HYDROXYCHLOROQUINE [Concomitant]
     Indication: ARTHRITIS

REACTIONS (6)
  - ANXIETY [None]
  - CATARACT [None]
  - HEARING DISABILITY [None]
  - LUNG NEOPLASM MALIGNANT [None]
  - NON-CARDIAC CHEST PAIN [None]
  - PANIC ATTACK [None]
